FAERS Safety Report 7787511-6 (Version None)
Quarter: 2011Q3

REPORT INFORMATION
  Report Type: 
  Country: None (occurrence: None)
  Receive Date: 20110929
  Receipt Date: 20110920
  Transmission Date: 20111222
  Serious: Yes (Other)
  Sender: FDA-Public Use
  Company Number: AT-ASTRAZENECA-2011SE53959

PATIENT
  Age: 61 Year
  Sex: Female
  Weight: 68 kg

DRUGS (7)
  1. LORAZEPAM [Concomitant]
  2. ARIMIDEX [Suspect]
     Indication: BREAST CANCER
     Route: 048
     Dates: start: 20040501
  3. T-ASS [Concomitant]
     Dates: start: 20080501
  4. NOMEXOR [Concomitant]
     Dates: start: 20050101
  5. MIRTABENE [Concomitant]
  6. JOSALID [Concomitant]
  7. CLARITHROMYCIN [Concomitant]

REACTIONS (16)
  - OSTEOARTHRITIS [None]
  - NAUSEA [None]
  - BONE PAIN [None]
  - AORTIC VALVE INCOMPETENCE [None]
  - ALOPECIA [None]
  - BREAST PAIN [None]
  - TEMPERATURE INTOLERANCE [None]
  - BRONCHITIS [None]
  - ASTIGMATISM [None]
  - SJOGREN'S SYNDROME [None]
  - HYPERHIDROSIS [None]
  - BLOOD CHOLESTEROL INCREASED [None]
  - TRICUSPID VALVE INCOMPETENCE [None]
  - PHOTOSENSITIVITY REACTION [None]
  - VULVOVAGINAL PRURITUS [None]
  - VULVOVAGINAL DRYNESS [None]
